FAERS Safety Report 9023468 (Version 1)
Quarter: 2013Q1

REPORT INFORMATION
  Report Type: Spontaneous
  Country: US (occurrence: US)
  Receive Date: 20130121
  Receipt Date: 20130121
  Transmission Date: 20140127
  Serious: No
  Sender: FDA-Public Use
  Company Number: US-OPTIMER PHARMACEUTICALS, INC.-20120156

PATIENT
  Age: 51 None
  Sex: Female
  Weight: 66.67 kg

DRUGS (6)
  1. DIFICID [Suspect]
     Indication: CLOSTRIDIUM DIFFICILE COLITIS
     Dosage: 200 MG, BID
     Route: 048
     Dates: start: 20121024, end: 20121103
  2. FUROSEMIDE [Concomitant]
     Indication: FLUID RETENTION
     Dosage: 20 MG, UNK
     Route: 048
  3. ATIVAN [Concomitant]
     Indication: DEPRESSION
     Dosage: 1 MG, UNK
     Route: 048
  4. PREVACID [Concomitant]
     Indication: GASTROOESOPHAGEAL REFLUX DISEASE
     Dosage: 15 MG, 3-4 TIMES DAILY
     Route: 048
  5. SALT [Concomitant]
     Indication: BLOOD SODIUM DECREASED
     Route: 048
  6. MOTRIN [Concomitant]
     Indication: TOOTHACHE
     Dosage: UNK, PRN
     Route: 048

REACTIONS (6)
  - Clostridium difficile infection [Unknown]
  - Disease recurrence [Unknown]
  - Abdominal pain upper [Not Recovered/Not Resolved]
  - Diarrhoea [Not Recovered/Not Resolved]
  - Constipation [Recovered/Resolved]
  - Weight decreased [Unknown]
